FAERS Safety Report 25186082 (Version 2)
Quarter: 2025Q2

REPORT INFORMATION
  Report Type: Spontaneous
  Country: US (occurrence: US)
  Receive Date: 20250410
  Receipt Date: 20250507
  Transmission Date: 20250717
  Serious: No
  Sender: KARYOPHARM THERAPEUTICS
  Company Number: US-KARYOPHARM-2025KPT100108

PATIENT

DRUGS (18)
  1. SELINEXOR [Suspect]
     Active Substance: SELINEXOR
     Indication: Plasma cell myeloma
     Route: 048
     Dates: start: 20250404, end: 202505
  2. ACYCLOVIR [Concomitant]
     Active Substance: ACYCLOVIR
  3. ARANESP [Concomitant]
     Active Substance: DARBEPOETIN ALFA
  4. BACTRIM DS [Concomitant]
     Active Substance: SULFAMETHOXAZOLE\TRIMETHOPRIM
  5. DESMOPRESSIN [Concomitant]
     Active Substance: DESMOPRESSIN
  6. DEXAMETHASONE [Concomitant]
     Active Substance: DEXAMETHASONE
  7. DIPHENHYDRAMINE [Concomitant]
     Active Substance: DIPHENHYDRAMINE
  8. LEVOFLOXACIN [Concomitant]
     Active Substance: LEVOFLOXACIN
  9. LOPERAMIDE HYDROCHLORIDE [Concomitant]
     Active Substance: LOPERAMIDE HYDROCHLORIDE
  10. METOCLOPRAMIDE [Concomitant]
     Active Substance: METOCLOPRAMIDE
  11. NEULASTA [Concomitant]
     Active Substance: PEGFILGRASTIM
  12. OLANZAPINE [Concomitant]
     Active Substance: OLANZAPINE
  13. PROAIR HFA [Concomitant]
     Active Substance: ALBUTEROL SULFATE
  14. PROCHLORPERAZINE MALEATE [Concomitant]
     Active Substance: PROCHLORPERAZINE MALEATE
  15. PROMACTA [Concomitant]
     Active Substance: ELTROMBOPAG OLAMINE
  16. VANCOMYCIN [Concomitant]
     Active Substance: VANCOMYCIN
  17. VELCADE [Concomitant]
     Active Substance: BORTEZOMIB
  18. XGEVA [Concomitant]
     Active Substance: DENOSUMAB

REACTIONS (5)
  - Nausea [Recovered/Resolved]
  - Vomiting [Unknown]
  - Diarrhoea [Unknown]
  - Epistaxis [Recovering/Resolving]
  - Platelet count decreased [Not Recovered/Not Resolved]

NARRATIVE: CASE EVENT DATE: 20250101
